FAERS Safety Report 9853334 (Version 2)
Quarter: 2014Q1

REPORT INFORMATION
  Report Type: Spontaneous
  Country: US (occurrence: US)
  Receive Date: 20140129
  Receipt Date: 20140313
  Transmission Date: 20141002
  Serious: Yes (Hospitalization, Other)
  Sender: FDA-Public Use
  Company Number: US-ABBVIE-14P-163-1193128-00

PATIENT
  Age: 39 Year
  Sex: Male
  Weight: 108.96 kg

DRUGS (11)
  1. HUMIRA [Suspect]
     Indication: CROHN^S DISEASE
     Dates: start: 201107, end: 20120629
  2. AZATHIOPRINE [Concomitant]
     Indication: PRODUCT USED FOR UNKNOWN INDICATION
     Dates: start: 2007
  3. TRAMADOL [Concomitant]
     Indication: PAIN
     Dosage: AS NEEDED, NO MORE THAN # 6 TABS PER DAY
     Route: 048
  4. MIRTAZAPINE [Concomitant]
     Indication: INSOMNIA
     Dosage: AT BEDTIME
     Route: 048
  5. MULTIVITAMIN [Concomitant]
     Indication: PRODUCT USED FOR UNKNOWN INDICATION
     Route: 048
  6. GABAPENTIN [Concomitant]
     Indication: BACK PAIN
     Dosage: 1 TAB MY MOUTH TWICE DAILY AND 2 TABS EVERY NIGHT AT BEDTIME
     Route: 048
  7. ALPRAZOLAM [Concomitant]
     Indication: ANXIETY
     Dosage: AS NEEDED
     Route: 048
  8. AZATHIOPRINE [Concomitant]
     Indication: PRODUCT USED FOR UNKNOWN INDICATION
     Route: 048
  9. CLINDAMYCIN 1% SOLUTION [Concomitant]
     Indication: PRODUCT USED FOR UNKNOWN INDICATION
     Dosage: 1 APP, IT COULD BE SOLUTION OR LOTION
     Route: 061
  10. CYMBALTA [Concomitant]
     Indication: PRODUCT USED FOR UNKNOWN INDICATION
     Route: 048
  11. PREDNISONE [Concomitant]
     Indication: PRODUCT USED FOR UNKNOWN INDICATION

REACTIONS (33)
  - White blood cell count increased [Unknown]
  - Abdominal pain [Not Recovered/Not Resolved]
  - Abdominal pain [Unknown]
  - Cellulitis [Not Recovered/Not Resolved]
  - Pyrexia [Recovered/Resolved]
  - Alpha haemolytic streptococcal infection [Unknown]
  - Abscess [Unknown]
  - Dermatitis acneiform [Not Recovered/Not Resolved]
  - Fistula [Unknown]
  - Skin disorder [Not Recovered/Not Resolved]
  - Rash [Not Recovered/Not Resolved]
  - Rash generalised [Not Recovered/Not Resolved]
  - Subcutaneous abscess [Unknown]
  - Groin abscess [Unknown]
  - Abscess [Unknown]
  - Rectal abscess [Unknown]
  - Enterocutaneous fistula [Unknown]
  - Hidradenitis [Not Recovered/Not Resolved]
  - Perineal abscess [Recovering/Resolving]
  - Oedema peripheral [Unknown]
  - Pain in extremity [Unknown]
  - Hidradenitis [Unknown]
  - Furuncle [Unknown]
  - Secretion discharge [Unknown]
  - Pyrexia [Recovered/Resolved]
  - Pyrexia [Unknown]
  - Chills [Unknown]
  - Abdominal pain [Unknown]
  - Faeces pale [Unknown]
  - Faecal incontinence [Unknown]
  - Diarrhoea [Unknown]
  - Urinary tract disorder [Unknown]
  - Weight decreased [Unknown]
